FAERS Safety Report 15474141 (Version 2)
Quarter: 2018Q4

REPORT INFORMATION
  Report Type: Spontaneous
  Country: DE (occurrence: DE)
  Receive Date: 20181008
  Receipt Date: 20181012
  Transmission Date: 20190205
  Serious: Yes (Life-Threatening, Hospitalization)
  Sender: FDA-Public Use
  Company Number: DE-TEVA-2018-DE-961539

PATIENT
  Age: 71 Year
  Sex: Female
  Weight: 80 kg

DRUGS (12)
  1. PALLADON [Concomitant]
     Active Substance: HYDROMORPHONE
     Indication: PAIN
     Dosage: 16 MILLIGRAM DAILY;
     Route: 048
  2. ENALAPRIL [Suspect]
     Active Substance: ENALAPRIL
     Indication: HYPERTENSION
     Dosage: 2.5 MILLIGRAM DAILY;
     Route: 048
     Dates: start: 2000, end: 20080826
  3. LANTUS [Concomitant]
     Active Substance: INSULIN GLARGINE
     Indication: TYPE 2 DIABETES MELLITUS
     Dosage: 32 IU (INTERNATIONAL UNIT) DAILY;
     Route: 058
     Dates: start: 1994
  4. TAVOR (LORAZEPAM) [Concomitant]
     Active Substance: LORAZEPAM
     Indication: SLEEP DISORDER
     Dosage: 2 MILLIGRAM DAILY;
     Route: 048
     Dates: start: 2007
  5. SIMVASTATIN. [Concomitant]
     Active Substance: SIMVASTATIN
     Indication: DYSLIPIDAEMIA
     Dosage: 40 MILLIGRAM DAILY;
     Route: 048
     Dates: start: 1996
  6. ATACAND [Interacting]
     Active Substance: CANDESARTAN CILEXETIL
     Indication: HYPERTENSION
     Dosage: 8 MILLIGRAM DAILY;
     Route: 048
     Dates: start: 2004, end: 20080828
  7. SPIRONOLACTONE. [Suspect]
     Active Substance: SPIRONOLACTONE
     Indication: HYPERTENSION
     Dosage: 25 MILLIGRAM DAILY;
     Route: 048
     Dates: start: 2006, end: 20080826
  8. ISDN ^STADA^ [Concomitant]
     Indication: CORONARY ARTERY DISEASE
     Dosage: 120 MILLIGRAM DAILY;
     Route: 048
     Dates: start: 1996, end: 20080826
  9. FUROSEMIDE. [Concomitant]
     Active Substance: FUROSEMIDE
     Indication: HYPERTENSION
     Route: 048
     Dates: start: 1996
  10. NOVORAPID [Concomitant]
     Active Substance: INSULIN ASPART
     Indication: TYPE 2 DIABETES MELLITUS
     Dosage: DOSE/APPLICATION: 26/22/24 IU
     Route: 058
     Dates: start: 1994
  11. BISOPROLOL CT [Concomitant]
     Indication: HYPERTENSION
     Dosage: 5 MILLIGRAM DAILY;
     Route: 048
     Dates: start: 2002
  12. ASPIRIN. [Concomitant]
     Active Substance: ASPIRIN
     Indication: CORONARY ARTERY DISEASE
     Dosage: 100 MILLIGRAM DAILY;
     Route: 048
     Dates: start: 2002, end: 20080826

REACTIONS (7)
  - Oedema peripheral [Recovered/Resolved]
  - Exercise tolerance decreased [Recovered/Resolved]
  - Dyspnoea [Recovered/Resolved]
  - Hyperkalaemia [Recovered/Resolved]
  - Renal failure [Unknown]
  - Drug interaction [Recovered/Resolved]
  - Dizziness [Recovered/Resolved]

NARRATIVE: CASE EVENT DATE: 20080820
